FAERS Safety Report 14636286 (Version 12)
Quarter: 2019Q1

REPORT INFORMATION
  Report Type: Report from Study
  Country: JP (occurrence: JP)
  Receive Date: 20180314
  Receipt Date: 20190121
  Transmission Date: 20190417
  Serious: Yes (Life-Threatening, Hospitalization, Other)
  Sender: FDA-Public Use
  Company Number: JP-SA-2018SA029293

PATIENT
  Age: 64 Year
  Sex: Female
  Weight: 75.6 kg

DRUGS (21)
  1. MYSLEE [Concomitant]
     Active Substance: ZOLPIDEM TARTRATE
     Indication: INSOMNIA
     Dosage: 10 MG, QD
     Route: 048
     Dates: start: 20150616
  2. INSULIN GLARGINE [Suspect]
     Active Substance: INSULIN GLARGINE
     Indication: TYPE 2 DIABETES MELLITUS
     Dosage: UNK, QD
     Route: 058
     Dates: start: 20171205, end: 20180131
  3. INSULIN GLARGINE [Suspect]
     Active Substance: INSULIN GLARGINE
     Dosage: UNK, QD
     Route: 058
     Dates: start: 20171125, end: 20171204
  4. DEPAS [ETIZOLAM] [Concomitant]
     Active Substance: ETIZOLAM
     Indication: PANIC DISORDER
     Dosage: 1.5 MG, QD
     Route: 048
     Dates: start: 20150714
  5. LEXOTAN [Concomitant]
     Active Substance: BROMAZEPAM
     Indication: PANIC DISORDER
     Dosage: 15 MG, QD
     Route: 048
     Dates: start: 20160510
  6. WYPAX [Concomitant]
     Active Substance: LORAZEPAM
     Indication: PANIC DISORDER
     Dosage: 1.5 MG, QD
     Route: 048
     Dates: start: 20150616
  7. MOHRUS L [Concomitant]
     Active Substance: KETOPROFEN
     Indication: PERIARTHRITIS
     Dosage: 2 SHEETS
     Route: 062
     Dates: start: 20151125
  8. INSULIN GLARGINE [Suspect]
     Active Substance: INSULIN GLARGINE
     Dosage: UNK, QD
     Route: 058
     Dates: start: 20171118, end: 20171124
  9. JZOLOFT [Concomitant]
     Active Substance: SERTRALINE HYDROCHLORIDE
     Indication: PANIC DISORDER
     Dosage: 75 MG, QD
     Route: 048
     Dates: start: 20140805
  10. GATIFLO [Concomitant]
     Active Substance: GATIFLOXACIN
     Indication: CONJUNCTIVITIS BACTERIAL
     Dosage: 4 TIMES
     Route: 047
     Dates: start: 20170424
  11. NITROPEN [Concomitant]
     Active Substance: NITROGLYCERIN
     Indication: CHEST PAIN
     Dosage: 0.3 MG, QD
     Route: 060
     Dates: start: 20141121
  12. ALLEGRA [Concomitant]
     Active Substance: FEXOFENADINE HYDROCHLORIDE
     Indication: NASOPHARYNGITIS
     Dosage: 120 MG, QD
     Route: 048
     Dates: start: 20180109
  13. INSULIN GLARGINE [Suspect]
     Active Substance: INSULIN GLARGINE
     Dosage: UNK, QD
     Route: 058
     Dates: start: 20171113, end: 20171117
  14. LIVOSTIN [Concomitant]
     Active Substance: LEVOCABASTINE HYDROCHLORIDE
     Indication: CONJUNCTIVITIS ALLERGIC
     Dosage: 4 TIMES
     Route: 047
     Dates: start: 20170523
  15. INSULIN GLARGINE [Suspect]
     Active Substance: INSULIN GLARGINE
     Dosage: UNK
     Route: 058
  16. LANSOPRAZOLE. [Concomitant]
     Active Substance: LANSOPRAZOLE
     Indication: CHRONIC GASTRITIS
     Dosage: 30 MG, QD
     Route: 048
     Dates: start: 20160705
  17. HYALEIN MINI [Concomitant]
     Active Substance: HYALURONATE SODIUM
     Indication: DRY EYE
     Dosage: 4 GTT DROPS, QD
     Route: 047
     Dates: start: 20161124
  18. METFORMIN HYDROCHLORIDE. [Suspect]
     Active Substance: METFORMIN HYDROCHLORIDE
     Indication: TYPE 2 DIABETES MELLITUS
     Dosage: 750 MG, QD
     Route: 048
     Dates: start: 20170821
  19. DESYREL [Concomitant]
     Active Substance: TRAZODONE HYDROCHLORIDE
     Indication: PANIC DISORDER
     Dosage: 100 MG, QD
     Route: 048
     Dates: start: 2013
  20. TAGAMET [Concomitant]
     Active Substance: CIMETIDINE
     Indication: CHRONIC GASTRITIS
     Dosage: 600 MG, QD
     Route: 048
     Dates: start: 20170920
  21. CALONAL [Concomitant]
     Active Substance: ACETAMINOPHEN
     Indication: NASOPHARYNGITIS
     Dosage: 900 MG, QD
     Route: 048
     Dates: start: 20180109

REACTIONS (5)
  - Pneumonia aspiration [Recovered/Resolved]
  - Hypoglycaemic encephalopathy [Recovering/Resolving]
  - Suicide attempt [Recovered/Resolved with Sequelae]
  - Hypoglycaemic unconsciousness [Recovered/Resolved]
  - Intentional overdose [Recovered/Resolved with Sequelae]

NARRATIVE: CASE EVENT DATE: 20180131
